FAERS Safety Report 4404458-3 (Version None)
Quarter: 2004Q3

REPORT INFORMATION
  Report Type: 
  Country: None (occurrence: None)
  Receive Date: 20040721
  Receipt Date: 20040721
  Transmission Date: 20050211
  Serious: Yes (Life-Threatening, Hospitalization, Other)
  Sender: FDA-Public Use
  Company Number: None

PATIENT
  Age: 20 Year
  Sex: Male
  Weight: 68.0396 kg

DRUGS (2)
  1. PROZAC [Suspect]
     Indication: DEPRESSION
     Dosage: DAILY
     Dates: start: 19960101, end: 20010101
  2. ZOLOFT [Suspect]
     Indication: DEPRESSION
     Dosage: DAILY
     Dates: start: 19960101, end: 20010101

REACTIONS (4)
  - AGGRESSION [None]
  - IMPRISONMENT [None]
  - PHARMACEUTICAL PRODUCT COMPLAINT [None]
  - SUICIDE ATTEMPT [None]
